FAERS Safety Report 25763155 (Version 1)
Quarter: 2025Q3

REPORT INFORMATION
  Report Type: Spontaneous
  Country: GB (occurrence: GB)
  Receive Date: 20250905
  Receipt Date: 20250905
  Transmission Date: 20251021
  Serious: Yes (Hospitalization, Disabling, Other)
  Sender: TEVA
  Company Number: None

PATIENT
  Age: 56 Year
  Sex: Female
  Weight: 59 kg

DRUGS (1)
  1. QVAR [Suspect]
     Active Substance: BECLOMETHASONE DIPROPIONATE
     Indication: Asthma
     Route: 065
     Dates: start: 20200305

REACTIONS (1)
  - Upper limb fracture [Recovered/Resolved with Sequelae]

NARRATIVE: CASE EVENT DATE: 20250516
